FAERS Safety Report 5336410-8 (Version None)
Quarter: 2007Q2

REPORT INFORMATION
  Report Type: 
  Country: None (occurrence: None)
  Receive Date: 20070523
  Receipt Date: 20070514
  Transmission Date: 20071010
  Serious: Yes (Hospitalization)
  Sender: FDA-Public Use
  Company Number: 2007SP009467

PATIENT
  Age: 55 Year
  Sex: Male
  Weight: 62 kg

DRUGS (10)
  1. PEG-INTRON [Suspect]
     Indication: HEPATITIS C
     Dosage: 100 MCG; QW; SC
     Route: 058
     Dates: start: 20060201, end: 20060629
  2. REBETOL [Suspect]
     Indication: HEPATITIS C
     Dosage: 800 MG; QD; PO
     Route: 048
     Dates: start: 20060201, end: 20060629
  3. TAKEPRON OD [Concomitant]
  4. ASPIRIN [Concomitant]
  5. PENALDINE [Concomitant]
  6. MEVALOTIN [Concomitant]
  7. JUZENTAIHOTO [Concomitant]
  8. PROMAC [Concomitant]
  9. JUVELA NICOTINATE [Concomitant]
  10. SUCRALFATE [Concomitant]

REACTIONS (2)
  - EPIGASTRIC DISCOMFORT [None]
  - JAUNDICE CHOLESTATIC [None]
